FAERS Safety Report 6549764-1 (Version None)
Quarter: 2010Q1

REPORT INFORMATION
  Report Type: 
  Country: None (occurrence: None)
  Receive Date: 20100125
  Receipt Date: 20100113
  Transmission Date: 20100710
  Serious: Yes (Hospitalization)
  Sender: FDA-Public Use
  Company Number: FR-CELGENEUS-056-21880-10010849

PATIENT
  Sex: Male

DRUGS (3)
  1. REVLIMID [Suspect]
     Indication: MULTIPLE MYELOMA
     Route: 048
     Dates: start: 20091228
  2. VELCADE [Suspect]
     Indication: MULTIPLE MYELOMA
     Route: 051
     Dates: start: 20091228
  3. DECTANCYL [Suspect]
     Indication: MULTIPLE MYELOMA
     Route: 048
     Dates: start: 20091228

REACTIONS (1)
  - LUNG DISORDER [None]
